FAERS Safety Report 26184652 (Version 1)
Quarter: 2025Q4

REPORT INFORMATION
  Report Type: Spontaneous
  Country: US (occurrence: US)
  Receive Date: 20251222
  Receipt Date: 20251222
  Transmission Date: 20260117
  Serious: No
  Sender: MERCK SHARP & DOHME LLC
  Company Number: US-009507513-2357697

PATIENT
  Age: 2 Month

DRUGS (1)
  1. ENFLONSIA [Suspect]
     Active Substance: CLESROVIMAB-CFOR
     Dates: start: 20251203

REACTIONS (2)
  - Medication error [Unknown]
  - No adverse event [Unknown]

NARRATIVE: CASE EVENT DATE: 20251203
